FAERS Safety Report 9107467 (Version 2)
Quarter: 2013Q2

REPORT INFORMATION
  Report Type: Spontaneous
  Country: US (occurrence: US)
  Receive Date: 20130221
  Receipt Date: 20130422
  Transmission Date: 20140414
  Serious: No
  Sender: FDA-Public Use
  Company Number: US-009507513-1302USA009507

PATIENT
  Sex: Female
  Weight: 53.5 kg

DRUGS (5)
  1. VICTRELIS [Suspect]
     Indication: HEPATITIS C
     Dosage: 800 MG, TID
     Route: 048
     Dates: start: 20130111
  2. VICTRELIS [Suspect]
     Dosage: UNK
  3. RIBASPHERE [Suspect]
     Dosage: UNK
  4. PEGASYS [Suspect]
     Dosage: UNK
  5. LEVOTHYROXINE SODIUM [Concomitant]

REACTIONS (6)
  - Headache [Unknown]
  - Fatigue [Unknown]
  - Anaemia [Unknown]
  - Pruritus [Unknown]
  - Fatigue [Unknown]
  - Rash generalised [Unknown]
